FAERS Safety Report 11507217 (Version 5)
Quarter: 2016Q3

REPORT INFORMATION
  Report Type: Spontaneous
  Country: FR (occurrence: FR)
  Receive Date: 20150915
  Receipt Date: 20160707
  Transmission Date: 20161109
  Serious: Yes (Congenital Anomaly)
  Sender: FDA-Public Use
  Company Number: FR-SA-2015SA136346

PATIENT
  Sex: Male
  Weight: 2.8 kg

DRUGS (2)
  1. AUBAGIO [Suspect]
     Active Substance: TERIFLUNOMIDE
     Route: 064
     Dates: start: 20140926, end: 20141026
  2. MONAZOL [Concomitant]
     Active Substance: SERTACONAZOLE NITRATE

REACTIONS (2)
  - Cerebral ventricle dilatation [Recovered/Resolved]
  - Foetal exposure during pregnancy [Unknown]

NARRATIVE: CASE EVENT DATE: 20150420
